FAERS Safety Report 9658859 (Version 3)
Quarter: 2013Q4

REPORT INFORMATION
  Report Type: Report from Study
  Country: TR (occurrence: TR)
  Receive Date: 20131030
  Receipt Date: 20131105
  Transmission Date: 20140711
  Serious: Yes (Hospitalization)
  Sender: FDA-Public Use
  Company Number: TR-ROCHE-1288155

PATIENT
  Age: 67 Year
  Sex: Female
  Weight: 76.5 kg

DRUGS (1)
  1. TRASTUZUMAB EMTANSINE [Suspect]
     Indication: BREAST CANCER
     Dosage: LAST DOSE PRIOR TO SAE: 11/SEP/2013.
     Route: 042
     Dates: start: 20130821, end: 20131010

REACTIONS (1)
  - Hepatotoxicity [Not Recovered/Not Resolved]
